FAERS Safety Report 7864528-4 (Version None)
Quarter: 2011Q4

REPORT INFORMATION
  Report Type: 
  Country: None (occurrence: None)
  Receive Date: 20111028
  Receipt Date: 20111025
  Transmission Date: 20120403
  Serious: No
  Sender: FDA-Public Use
  Company Number: US-PFIZER INC-2011260210

PATIENT
  Sex: Female
  Weight: 73.923 kg

DRUGS (6)
  1. PROCARDIA XL [Suspect]
     Indication: OESOPHAGITIS
  2. PROCARDIA XL [Suspect]
     Indication: HIATUS HERNIA
     Dosage: 30 MG, 1X/DAY
     Dates: end: 20110812
  3. METFORMIN [Concomitant]
     Indication: DIABETES MELLITUS
     Dosage: UNK
  4. NEXIUM [Concomitant]
     Indication: GASTROOESOPHAGEAL REFLUX DISEASE
     Dosage: UNK
  5. LEXAPRO [Concomitant]
     Indication: ANXIETY
     Dosage: UNK
  6. CRESTOR [Concomitant]
     Indication: BLOOD CHOLESTEROL INCREASED
     Dosage: UNK

REACTIONS (4)
  - CONFUSIONAL STATE [None]
  - CHEST DISCOMFORT [None]
  - BLOOD GLUCOSE INCREASED [None]
  - DYSPNOEA [None]
